FAERS Safety Report 25596114 (Version 4)
Quarter: 2025Q4

REPORT INFORMATION
  Report Type: Spontaneous
  Country: US (occurrence: US)
  Receive Date: 20250723
  Receipt Date: 20251020
  Transmission Date: 20260118
  Serious: No
  Sender: SANOFI AVENTIS
  Company Number: US-SA-2025SA209537

PATIENT
  Age: 89 Year
  Sex: Female

DRUGS (2)
  1. DUPIXENT [Suspect]
     Active Substance: DUPILUMAB
     Indication: Dermatitis atopic
     Dosage: 600 MG, 1X
     Route: 058
     Dates: start: 202507, end: 202507
  2. DUPIXENT [Suspect]
     Active Substance: DUPILUMAB
     Indication: Eczema
     Dosage: 300 MG, QOW
     Route: 058
     Dates: start: 2025

REACTIONS (7)
  - Vitreous floaters [Unknown]
  - Cheilitis [Not Recovered/Not Resolved]
  - Condition aggravated [Not Recovered/Not Resolved]
  - Onychoclasis [Unknown]
  - Chapped lips [Unknown]
  - Skin exfoliation [Unknown]
  - Vision blurred [Unknown]

NARRATIVE: CASE EVENT DATE: 20250101
